FAERS Safety Report 18724324 (Version 3)
Quarter: 2021Q2

REPORT INFORMATION
  Report Type: Spontaneous
  Country: US (occurrence: US)
  Receive Date: 20210111
  Receipt Date: 20210414
  Transmission Date: 20210717
  Serious: No
  Sender: FDA-Public Use
  Company Number: US-PFIZER INC-2020518433

PATIENT
  Age: 65 Year
  Sex: Female

DRUGS (1)
  1. XELJANZ XR [Suspect]
     Active Substance: TOFACITINIB CITRATE
     Dosage: 11 MG

REACTIONS (4)
  - Pain [Recovered/Resolved]
  - Loss of personal independence in daily activities [Unknown]
  - Liver function test increased [Unknown]
  - Psoriasis [Unknown]

NARRATIVE: CASE EVENT DATE: 202101
